FAERS Safety Report 9639880 (Version 1)
Quarter: 2013Q4

REPORT INFORMATION
  Report Type: Spontaneous
  Country: US (occurrence: None)
  Receive Date: 20131021
  Receipt Date: 20131021
  Transmission Date: 20140711
  Serious: Yes (Other)
  Sender: FDA-Public Use
  Company Number: None

PATIENT
  Age: 67 Year
  Sex: Male
  Weight: 70.31 kg

DRUGS (1)
  1. DILANTIN [Suspect]
     Route: 048

REACTIONS (4)
  - Pruritus [None]
  - Urticaria [None]
  - Drug level fluctuating [None]
  - Product substitution issue [None]
